FAERS Safety Report 9983238 (Version 1)
Quarter: 2014Q1

REPORT INFORMATION
  Report Type: Report from Study
  Country: US (occurrence: US)
  Receive Date: 20140307
  Receipt Date: 20140307
  Transmission Date: 20141002
  Serious: No
  Sender: FDA-Public Use
  Company Number: US-ABBVIE-13P-163-1178125-00

PATIENT
  Age: 58 Year
  Sex: Female

DRUGS (4)
  1. HUMIRA [Suspect]
     Indication: PSORIATIC ARTHROPATHY
     Dates: start: 20131017
  2. PREDNISONE [Suspect]
     Indication: PRODUCT USED FOR UNKNOWN INDICATION
  3. ESCITALOPRAM [Concomitant]
     Indication: DEPRESSION
  4. ESCITALOPRAM [Concomitant]
     Indication: ANXIETY

REACTIONS (6)
  - Endometriosis [Unknown]
  - Postmenopausal haemorrhage [Recovered/Resolved]
  - Postmenopausal haemorrhage [Not Recovered/Not Resolved]
  - Injection site bruising [Not Recovered/Not Resolved]
  - Injection site vesicles [Recovered/Resolved]
  - Paraesthesia [Recovered/Resolved]
